FAERS Safety Report 5905528-0 (Version None)
Quarter: 2008Q4

REPORT INFORMATION
  Report Type: 
  Country: None (occurrence: None)
  Receive Date: 20081001
  Receipt Date: 20081001
  Transmission Date: 20090506
  Serious: Yes (Hospitalization)
  Sender: FDA-Public Use
  Company Number: None

PATIENT
  Age: 68 Year
  Sex: Male
  Weight: 93.4 kg

DRUGS (1)
  1. CETUXIMAB [Suspect]
     Indication: NEOPLASM MALIGNANT
     Dosage: 800 MG QWEEK IV
     Route: 042
     Dates: start: 20080725, end: 20080725

REACTIONS (4)
  - CHEST DISCOMFORT [None]
  - DYSPNOEA [None]
  - RESPIRATORY DEPRESSION [None]
  - TACHYPNOEA [None]
